FAERS Safety Report 23262315 (Version 2)
Quarter: 2023Q4

REPORT INFORMATION
  Report Type: Spontaneous
  Country: US (occurrence: US)
  Receive Date: 20231205
  Receipt Date: 20231206
  Transmission Date: 20240110
  Serious: No
  Sender: FDA-Public Use
  Company Number: US-ABBVIE-5525558

PATIENT

DRUGS (3)
  1. BOTOX COSMETIC [Suspect]
     Active Substance: ONABOTULINUMTOXINA
     Indication: Skin wrinkling
     Dosage: TIME INTERVAL: AS NECESSARY: BOTOX COSMETC 100 UNITS/VIA?TOTAL DOSE 50 DOSAGE FORM?50 IU
     Route: 065
     Dates: start: 20231117, end: 20231117
  2. BOTOX COSMETIC [Suspect]
     Active Substance: ONABOTULINUMTOXINA
     Indication: Skin wrinkling
     Dosage: TIME INTERVAL: AS NECESSARY: BOTOX COSMETC 100 UNITS/VIA?TOTAL DOSE 50 DOSAGE FORM?50 IU
     Route: 065
     Dates: start: 20231117, end: 20231117
  3. BOTOX COSMETIC [Suspect]
     Active Substance: ONABOTULINUMTOXINA
     Indication: Skin wrinkling
     Dosage: TIME INTERVAL: AS NECESSARY: BOTOX COSMETC 100 UNITS/VIA?TOTAL DOSE 50 DOSAGE FORM?50 IU
     Route: 065
     Dates: start: 20231117, end: 20231117

REACTIONS (1)
  - Drug ineffective [Unknown]
